FAERS Safety Report 8551756-8 (Version None)
Quarter: 2012Q3

REPORT INFORMATION
  Report Type: 
  Country: None (occurrence: None)
  Receive Date: 20120730
  Receipt Date: 20120716
  Transmission Date: 20120928
  Serious: Yes (Hospitalization)
  Sender: FDA-Public Use
  Company Number: US-BAYER-2012-071760

PATIENT
  Age: 33 Year
  Sex: Female
  Weight: 105.5 kg

DRUGS (19)
  1. NIFEDIPINE [Concomitant]
     Dosage: 30 MG, UNK
     Dates: start: 20110404
  2. LYRICA [Concomitant]
     Dosage: 50 MG THREE TIMES DAILY
  3. FLEXERIL [Concomitant]
     Dosage: 10 MG, THREE TIMES DAILY
  4. DROSPIRENONE AND ETHINYL ESTRADIOL [Suspect]
     Dosage: UNK
     Dates: start: 20090101, end: 20110701
  5. XANAX [Concomitant]
     Indication: PANIC ATTACK
     Dosage: 0.5MG, ? TABLET THREE TIMES DAILY
  6. CEFUROXIME [Concomitant]
     Dosage: 500MG TWICE DAILY FOR 10 DAYS
     Dates: start: 20110524
  7. METFORMIN HYDROCHLORIDE [Concomitant]
     Dosage: 500 MG, DAILY
  8. CELEXA [Concomitant]
     Dosage: 40 MG, DAILY
  9. VALIUM [Concomitant]
     Dosage: 5 MG, UNK
     Dates: start: 20110418
  10. LAMICTAL [Concomitant]
     Dosage: 100 MG, DAILY
     Dates: start: 20110412
  11. ASPIRIN [Concomitant]
     Dosage: UNK
  12. NUCYNTA [Concomitant]
     Dosage: 75 MG EVERY 8 HOURS
  13. KLONOPIN [Concomitant]
     Dosage: 1 TWICE DAILY
     Dates: start: 20110412
  14. KEPPRA [Concomitant]
     Dosage: 500 MG, TWICE DAILY
     Dates: start: 20110427
  15. ALPRAZOLAM [Concomitant]
     Dosage: 0.5 MG, THREE TIMES DAILY (? TAB IN AM, AND AT NOON, AND 1 TAB QHS)
  16. PREDNISOLONE [Concomitant]
     Dosage: 15MG/5ML, 2 [TEASPOONS] TWICE DAILY FOR 3 DAYS, 1 [TEASPOON] TWICE DAILY FOR 3 DAYS, THEN 1 [TEASPOO
     Dates: start: 20110524
  17. DRISDOL [Concomitant]
     Dosage: 50,000 UNITS WEEKLY X 12 WEEKS
     Dates: start: 20110524
  18. INDAPAMIDE [Concomitant]
     Dosage: 1.25 MG, DAILY
  19. TRAZODONE HYDROCHLORIDE [Concomitant]
     Dosage: 100 MG, UNK
     Dates: start: 20110412

REACTIONS (2)
  - INJURY [None]
  - DEEP VEIN THROMBOSIS [None]
